FAERS Safety Report 7569602-8 (Version None)
Quarter: 2011Q2

REPORT INFORMATION
  Report Type: 
  Country: None (occurrence: None)
  Receive Date: 20110617
  Receipt Date: 20110603
  Transmission Date: 20111010
  Serious: Yes (Hospitalization)
  Sender: FDA-Public Use
  Company Number: 950850

PATIENT
  Age: 49 Year
  Sex: Female

DRUGS (1)
  1. PACLITAXEL [Suspect]
     Indication: PRODUCT USED FOR UNKNOWN INDICATION
     Dosage: INTRAVENOUS
     Route: 042
     Dates: start: 20110414

REACTIONS (1)
  - THROAT IRRITATION [None]
